FAERS Safety Report 15188819 (Version 1)
Quarter: 2018Q3

REPORT INFORMATION
  Report Type: Report from Study
  Country: ES (occurrence: ES)
  Receive Date: 20180724
  Receipt Date: 20180724
  Transmission Date: 20181010
  Serious: Yes (Hospitalization)
  Sender: FDA-Public Use
  Company Number: ES-SA-2018SA142492

PATIENT
  Age: 74 Year
  Sex: Male
  Weight: 79 kg

DRUGS (14)
  1. 5?FU [FLUOROURACIL] [Suspect]
     Active Substance: FLUOROURACIL
     Dosage: 760MG , 1/24 HR(QCY)
     Route: 040
     Dates: start: 20180424, end: 20180424
  2. LEUCOVORIN [FOLINIC ACID] [Suspect]
     Active Substance: LEUCOVORIN
     Dosage: 760MG , 1/24 HR (QCY)
     Route: 042
     Dates: start: 20180424, end: 20180424
  3. 5?FU [FLUOROURACIL] [Suspect]
     Active Substance: FLUOROURACIL
     Dosage: 4560 MG, 1/48HR (QCY)
     Route: 041
     Dates: start: 20180424, end: 20180424
  4. OMEPRAZOL [OMEPRAZOLE] [Concomitant]
     Indication: HYPERTENSION
     Dosage: 5 MG, QD
     Route: 048
  5. IRINOTECAN [Suspect]
     Active Substance: IRINOTECAN
     Indication: COLON CANCER
     Dosage: 342 MG, 1/24 HR (QCY)
     Route: 042
     Dates: start: 20180521, end: 20180521
  6. ENALAPRIL [Concomitant]
     Active Substance: ENALAPRIL
     Indication: HYPERTENSION
     Dosage: 20 MG, QD
     Route: 048
  7. 5?FU [FLUOROURACIL] [Suspect]
     Active Substance: FLUOROURACIL
     Indication: COLON CANCER
     Dosage: 760MG , 1/24 HR(QCY)
     Route: 040
     Dates: start: 20180521, end: 20180521
  8. CODEINE [Concomitant]
     Active Substance: CODEINE
     Indication: ANALGESIC THERAPY
     Dosage: UNK MG/ML
     Route: 048
     Dates: start: 20180504
  9. LEUCOVORIN (FOLINIC ACID) [Suspect]
     Active Substance: LEUCOVORIN
     Indication: COLON CANCER
     Dosage: 760MG , 1/24 HR (QCY)
     Route: 042
     Dates: start: 20180521, end: 20180521
  10. 5?FU [FLUOROURACIL] [Suspect]
     Active Substance: FLUOROURACIL
     Dosage: 4560 MG, 1/48HR (QCY)
     Route: 041
     Dates: start: 20180521, end: 20180521
  11. AMLODIPINE [Concomitant]
     Active Substance: AMLODIPINE BESYLATE
     Indication: HYPERTENSION
     Dosage: 5 MG, QD
     Route: 048
  12. AFLIBERCEPT [Suspect]
     Active Substance: AFLIBERCEPT
     Indication: COLON CANCER
     Dosage: 316 MG, 1/24 HR (QCY)
     Route: 042
     Dates: start: 20180521, end: 20180521
  13. AFLIBERCEPT [Suspect]
     Active Substance: AFLIBERCEPT
     Dosage: 316 MG, 1/24 HR (QCY)
     Route: 042
     Dates: start: 20180424, end: 20180424
  14. IRINOTECAN [Suspect]
     Active Substance: IRINOTECAN
     Dosage: 342 MG, 1/24 HR (QCY)
     Route: 042
     Dates: start: 20180424, end: 20180424

REACTIONS (1)
  - Oesophagitis [Not Recovered/Not Resolved]

NARRATIVE: CASE EVENT DATE: 20180522
